FAERS Safety Report 11059575 (Version 1)
Quarter: 2015Q2

REPORT INFORMATION
  Report Type: Spontaneous
  Country: DE (occurrence: DE)
  Receive Date: 20150423
  Receipt Date: 20150423
  Transmission Date: 20150821
  Serious: Yes (Life-Threatening, Hospitalization)
  Sender: FDA-Public Use
  Company Number: DE-ELI_LILLY_AND_COMPANY-DE201504006309

PATIENT
  Age: 69 Year
  Sex: Female

DRUGS (10)
  1. ZYPREXA [Suspect]
     Active Substance: OLANZAPINE
     Indication: PRODUCT USED FOR UNKNOWN INDICATION
     Dosage: 5 MG, UNKNOWN
     Route: 065
     Dates: end: 20090426
  2. ORFIRIL [Suspect]
     Active Substance: VALPROIC ACID
     Indication: PRODUCT USED FOR UNKNOWN INDICATION
     Dosage: 600 MG, QD
     Route: 065
  3. ERGENYL                            /00228502/ [Concomitant]
     Dosage: 300 MG, QD
     Route: 065
     Dates: start: 20090426
  4. ERGENYL                            /00228502/ [Concomitant]
     Dosage: 450 MG, QD
     Route: 065
     Dates: start: 20090506
  5. L-THYROXIN [Concomitant]
     Active Substance: LEVOTHYROXINE SODIUM
     Dosage: 75 MG, QD
  6. TREVILOR RETARD [Suspect]
     Active Substance: VENLAFAXINE HYDROCHLORIDE
     Indication: PRODUCT USED FOR UNKNOWN INDICATION
     Dosage: UNK
     Route: 065
     Dates: end: 20090426
  7. BISOHEXAL [Concomitant]
     Active Substance: BISOPROLOL FUMARATE
  8. ERGENYL                            /00228502/ [Concomitant]
     Dosage: 600 MG, QD
     Route: 065
     Dates: start: 20090507
  9. DIPIPERON [Concomitant]
     Active Substance: PIPAMPERONE
     Dosage: 30 MG, QD
  10. SIMVASTATIN MEPHA [Concomitant]
     Dosage: 40 DF, QD

REACTIONS (1)
  - Hyponatraemia [Recovered/Resolved]

NARRATIVE: CASE EVENT DATE: 20090426
